FAERS Safety Report 7484773-X (Version None)
Quarter: 2011Q2

REPORT INFORMATION
  Report Type: 
  Country: None (occurrence: None)
  Receive Date: 20110517
  Receipt Date: 20110510
  Transmission Date: 20111010
  Serious: Yes (Other)
  Sender: FDA-Public Use
  Company Number: GB-ROCHE-666007

PATIENT
  Sex: Female
  Weight: 59.4 kg

DRUGS (3)
  1. BENDROFLUMETHIAZIDE [Concomitant]
     Dates: start: 20070701
  2. RAMIPRIL [Concomitant]
     Dates: start: 20070701
  3. BEVACIZUMAB [Suspect]
     Indication: BREAST CANCER
     Dosage: LAST DOS EPRIOR TO SAE 29 SEP 2009, FORM REPORTED INFUSION.
     Route: 042
     Dates: start: 20090220

REACTIONS (1)
  - ELECTROCARDIOGRAM QT PROLONGED [None]
